FAERS Safety Report 24998184 (Version 1)
Quarter: 2025Q1

REPORT INFORMATION
  Report Type: Spontaneous
  Country: US (occurrence: US)
  Receive Date: 20250222
  Receipt Date: 20250222
  Transmission Date: 20250409
  Serious: No
  Sender: SANOFI AVENTIS
  Company Number: US-SA-2025SA044726

PATIENT
  Age: 73 Year
  Sex: Female

DRUGS (1)
  1. DUPIXENT [Suspect]
     Active Substance: DUPILUMAB
     Indication: Dermatitis atopic
     Dosage: DM300P Q 2 WS S15
     Route: 065

REACTIONS (7)
  - Sleep disorder due to general medical condition, insomnia type [Unknown]
  - Lymphadenopathy [Unknown]
  - Headache [Unknown]
  - Dry eye [Unknown]
  - Eye pruritus [Unknown]
  - Rash [Unknown]
  - Arthralgia [Unknown]
